FAERS Safety Report 8740315 (Version 2)
Quarter: 2012Q4

REPORT INFORMATION
  Report Type: 
  Country: DE (occurrence: DE)
  Receive Date: 20120823
  Receipt Date: 20121025
  Transmission Date: 20130627
  Serious: Yes (Other)
  Sender: FDA-Public Use
  Company Number: DE-B.I. PHARMACEUTICALS,INC./RIDGEFIELD-2012-DE-01959DE

PATIENT
  Sex: Male
  Weight: 70 kg

DRUGS (3)
  1. PRADAXA [Suspect]
     Indication: CEREBROVASCULAR ACCIDENT
     Dosage: 300 mg
     Route: 048
     Dates: start: 20111116, end: 20120510
  2. PRADAXA [Suspect]
     Indication: ATRIAL FIBRILLATION
  3. FINASTERID [Concomitant]
     Dosage: 5 NR
     Route: 048
     Dates: start: 1998

REACTIONS (2)
  - Hepatic enzyme increased [Recovered/Resolved]
  - Malaise [Unknown]
